FAERS Safety Report 22169028 (Version 1)
Quarter: 2023Q2

REPORT INFORMATION
  Report Type: Spontaneous
  Country: US (occurrence: US)
  Receive Date: 20230404
  Receipt Date: 20230404
  Transmission Date: 20230722
  Serious: Yes (Other)
  Sender: FDA-Public Use
  Company Number: US-002147023-NVSC2023US076155

PATIENT
  Age: 68 Year
  Sex: Male

DRUGS (5)
  1. BEOVU [Suspect]
     Active Substance: BROLUCIZUMAB-DBLL
     Indication: Age-related macular degeneration
     Dosage: UNK (LOADING DOSE, LEFT EYE, OS, TIME PERIOD OF 49)
     Route: 065
     Dates: start: 20191227
  2. BEOVU [Suspect]
     Active Substance: BROLUCIZUMAB-DBLL
     Dosage: UNK (LOADING DOSE, LEFT EYE, OS, TIME PERIOD OF 40)
     Route: 065
     Dates: start: 20200205
  3. BEOVU [Suspect]
     Active Substance: BROLUCIZUMAB-DBLL
     Dosage: UNK (LOADING DOSE, LEFT EYE, OS, TIME PERIOD OF 30)
     Route: 065
     Dates: start: 20200306
  4. BEOVU [Suspect]
     Active Substance: BROLUCIZUMAB-DBLL
     Dosage: UNK (LOADING DOSE, LEFT EYE, OS, TIME PERIOD OF 63)
     Route: 065
     Dates: start: 20200508
  5. BEOVU [Suspect]
     Active Substance: BROLUCIZUMAB-DBLL
     Dosage: UNK (LOADING DOSE, LEFT EYE, OS, TIME PERIOD OF 56)
     Route: 065
     Dates: start: 20200703

REACTIONS (3)
  - Uveitis [Recovered/Resolved]
  - Punctate keratitis [Recovered/Resolved]
  - Visual impairment [Unknown]

NARRATIVE: CASE EVENT DATE: 20200707
